FAERS Safety Report 7610690-8 (Version None)
Quarter: 2011Q3

REPORT INFORMATION
  Report Type: 
  Country: None (occurrence: None)
  Receive Date: 20110715
  Receipt Date: 20110712
  Transmission Date: 20111222
  Serious: Yes (Other)
  Sender: FDA-Public Use
  Company Number: SE-SANOFI-AVENTIS-2011SA044147

PATIENT
  Age: 55 Year
  Sex: Male

DRUGS (2)
  1. PLAQUENIL [Suspect]
     Route: 048
     Dates: start: 20090101, end: 20090625
  2. PLAQUENIL [Suspect]
     Route: 048
     Dates: start: 19930101, end: 20090101

REACTIONS (3)
  - ATRIAL FIBRILLATION [None]
  - DIPLOPIA [None]
  - PERSONALITY DISORDER [None]
